FAERS Safety Report 6409356-1 (Version None)
Quarter: 2009Q4

REPORT INFORMATION
  Report Type: 
  Country: None (occurrence: None)
  Receive Date: 20091019
  Receipt Date: 20091019
  Transmission Date: 20100525
  Serious: Yes (Other)
  Sender: FDA-Public Use
  Company Number: None

PATIENT
  Age: 21 Year
  Sex: Female
  Weight: 97.5234 kg

DRUGS (1)
  1. MIRENA [Suspect]
     Indication: CONTRACEPTION
     Dosage: IUC ONCE EVERY 5 YEARS INTRA-UTERINE
     Route: 015
     Dates: start: 20090415, end: 20091015

REACTIONS (3)
  - CONVULSION [None]
  - MOOD SWINGS [None]
  - WEIGHT INCREASED [None]
